FAERS Safety Report 16903566 (Version 2)
Quarter: 2019Q4

REPORT INFORMATION
  Report Type: Spontaneous
  Country: JP (occurrence: JP)
  Receive Date: 20191010
  Receipt Date: 20191204
  Transmission Date: 20200122
  Serious: Yes (Other)
  Sender: FDA-Public Use
  Company Number: JP-PFIZER INC-2019433186

PATIENT
  Age: 87 Year
  Sex: Male
  Weight: 54 kg

DRUGS (21)
  1. CEFTRIAXONE SODIUM 1G PFIZER [Suspect]
     Active Substance: CEFTRIAXONE SODIUM
     Indication: INFECTIVE SPONDYLITIS
  2. ACETOKEEP 3G [Concomitant]
     Dosage: UNK
     Dates: start: 20190927, end: 20190928
  3. FUNGUARD [Concomitant]
     Active Substance: MICAFUNGIN SODIUM
     Dosage: UNK
     Dates: start: 20190929, end: 20190929
  4. FUROSEMIDE. [Concomitant]
     Active Substance: FUROSEMIDE
     Dosage: UNK
     Dates: start: 20190926
  5. LOXOPROFEN EMEC [Concomitant]
     Active Substance: LOXOPROFEN
     Dosage: UNK
     Dates: start: 20190927
  6. CEFTRIAXONE SODIUM 1G PFIZER [Suspect]
     Active Substance: CEFTRIAXONE SODIUM
     Indication: PSOAS ABSCESS
  7. HEPARIN NA LOCK [Concomitant]
     Active Substance: HEPARIN SODIUM
     Dosage: UNK
     Dates: start: 20190926, end: 20190927
  8. BFLUID [Concomitant]
     Active Substance: AMINO ACIDS\DEXTROSE\ELECTROLYTES NOS\VITAMINS
     Dosage: UNK
     Dates: start: 20190928
  9. SOLYUGEN G [Concomitant]
     Dosage: UNK
     Dates: start: 20190929
  10. ACELIO [Concomitant]
     Active Substance: ACETAMINOPHEN
     Dosage: UNK
     Dates: start: 20190929, end: 20190929
  11. QUETIAPINE. [Concomitant]
     Active Substance: QUETIAPINE
     Dosage: UNK
     Dates: start: 20190927
  12. CEFTRIAXONE SODIUM 1G PFIZER [Suspect]
     Active Substance: CEFTRIAXONE SODIUM
     Indication: KLEBSIELLA TEST POSITIVE
     Dosage: 2 G, 2X/DAY
     Route: 041
     Dates: start: 20190926, end: 20190930
  13. ELNEOPA NF NO.2 [Concomitant]
     Dosage: UNK
     Dates: start: 20190926, end: 20190927
  14. ROSUVASTATIN. [Concomitant]
     Active Substance: ROSUVASTATIN
     Dosage: UNK
     Dates: start: 20190927
  15. TRAMAL [Concomitant]
     Active Substance: TRAMADOL
     Dosage: UNK
     Dates: start: 20190929
  16. CEFTRIAXONE SODIUM 1G PFIZER [Suspect]
     Active Substance: CEFTRIAXONE SODIUM
     Indication: INTERVERTEBRAL DISCITIS
  17. LANSOPRAZOLE. [Concomitant]
     Active Substance: LANSOPRAZOLE
     Dosage: UNK
     Dates: start: 20190927
  18. PRIMPERAN [Concomitant]
     Active Substance: METOCLOPRAMIDE HYDROCHLORIDE
     Dosage: UNK
     Dates: start: 20190929, end: 20190929
  19. MIYA-BM [Concomitant]
     Active Substance: CLOSTRIDIUM BUTYRICUM SPORES STRAIN M-55
     Dosage: UNK
     Dates: start: 20190927
  20. SENNOSIDE TOWA [Concomitant]
     Dosage: UNK
     Dates: start: 20190927, end: 20190927
  21. FENTANYL JANSSEN [Concomitant]
     Active Substance: FENTANYL
     Dosage: UNK
     Dates: start: 20190926, end: 20190928

REACTIONS (2)
  - Cholelithiasis [Recovered/Resolved]
  - Cholecystitis acute [Recovered/Resolved]

NARRATIVE: CASE EVENT DATE: 20190929
